FAERS Safety Report 6853673-8 (Version None)
Quarter: 2010Q3

REPORT INFORMATION
  Report Type: 
  Country: None (occurrence: None)
  Receive Date: 20100717
  Receipt Date: 20071213
  Transmission Date: 20110219
  Serious: No
  Sender: FDA-Public Use
  Company Number: US-PFIZER INC-2007106107

PATIENT
  Sex: Female
  Weight: 54.545 kg

DRUGS (4)
  1. CHANTIX [Suspect]
     Indication: SMOKING CESSATION THERAPY
     Dates: start: 20071202
  2. CARBATROL [Concomitant]
  3. CLONAZEPAM [Concomitant]
  4. LEXAPRO [Concomitant]

REACTIONS (2)
  - DYSPNOEA [None]
  - NAUSEA [None]
